FAERS Safety Report 8434650-2 (Version None)
Quarter: 2012Q2

REPORT INFORMATION
  Report Type: 
  Country: None (occurrence: None)
  Receive Date: 20120614
  Receipt Date: 20120613
  Transmission Date: 20120825
  Serious: Yes (Hospitalization)
  Sender: FDA-Public Use
  Company Number: DE-VERTEX PHARMACEUTICALS INC.-AE-2011-004446

PATIENT
  Sex: Male
  Weight: 79 kg

DRUGS (3)
  1. VX-950 [Suspect]
     Indication: HEPATITIS C
     Route: 048
     Dates: start: 20110919, end: 20111201
  2. PEGINTERFERON ALFA [Concomitant]
     Indication: HEPATITIS C
     Dates: start: 20110919, end: 20111206
  3. RIBAVIRIN [Concomitant]
     Indication: HEPATITIS C
     Route: 048
     Dates: start: 20110919, end: 20111206

REACTIONS (2)
  - FEBRILE INFECTION [None]
  - HYPONATRAEMIA [None]
